FAERS Safety Report 4895450-3 (Version None)
Quarter: 2006Q1

REPORT INFORMATION
  Report Type: 
  Country: None (occurrence: None)
  Receive Date: 20060125
  Receipt Date: 20060110
  Transmission Date: 20060701
  Serious: Yes (Hospitalization, Other)
  Sender: FDA-Public Use
  Company Number: 104979

PATIENT
  Age: 52 Year
  Sex: Male

DRUGS (1)
  1. CALCIPOTRIENE [Suspect]
     Indication: PSORIASIS
     Dosage: TO
     Route: 061
     Dates: start: 19920101, end: 20041001

REACTIONS (1)
  - OSTEOPOROSIS [None]
